FAERS Safety Report 25500796 (Version 1)
Quarter: 2025Q3

REPORT INFORMATION
  Report Type: Spontaneous
  Country: US (occurrence: US)
  Receive Date: 20250701
  Receipt Date: 20250701
  Transmission Date: 20251020
  Serious: Yes (Other)
  Sender: TAKEDA
  Company Number: US-TAKEDA-2025TUS057844

PATIENT
  Age: 68 Year
  Sex: Male

DRUGS (2)
  1. MIDODRINE [Suspect]
     Active Substance: MIDODRINE
     Indication: Blood pressure abnormal
  2. ACETAMINOPHEN [Suspect]
     Active Substance: ACETAMINOPHEN
     Indication: Product used for unknown indication

REACTIONS (3)
  - Autoimmune hepatitis [Unknown]
  - Drug ineffective [Unknown]
  - Overdose [Unknown]
